FAERS Safety Report 9552483 (Version 1)
Quarter: 2013Q3

REPORT INFORMATION
  Report Type: Spontaneous
  Country: US (occurrence: US)
  Receive Date: 20130925
  Receipt Date: 20130925
  Transmission Date: 20140515
  Serious: No
  Sender: FDA-Public Use
  Company Number: US-PFIZER INC-2013271815

PATIENT
  Age: 74 Year
  Sex: Female
  Weight: 60.32 kg

DRUGS (4)
  1. FLECTOR [Suspect]
     Indication: NEURALGIA
     Dosage: UNK
     Dates: start: 201309, end: 20130917
  2. URSODIOL [Concomitant]
     Indication: CHOLELITHIASIS
     Dosage: UNK
  3. ASPIRIN [Concomitant]
     Dosage: UNK
  4. NEURONTIN [Concomitant]
     Indication: NEURALGIA
     Dosage: UNK

REACTIONS (2)
  - Local swelling [Not Recovered/Not Resolved]
  - Ecchymosis [Not Recovered/Not Resolved]
